FAERS Safety Report 24121753 (Version 2)
Quarter: 2024Q3

REPORT INFORMATION
  Report Type: Spontaneous
  Country: DE (occurrence: DE)
  Receive Date: 20240722
  Receipt Date: 20240729
  Transmission Date: 20241016
  Serious: Yes (Other)
  Sender: REGENERON
  Company Number: DE-BAYER-2024A105709

PATIENT

DRUGS (1)
  1. EYLEA HD [Suspect]
     Active Substance: AFLIBERCEPT
     Indication: Product used for unknown indication
     Dosage: UNK, 114.3 MG/ML SOLUTION FOR INJECTION
     Route: 031

REACTIONS (3)
  - Uveitis [Recovering/Resolving]
  - Vitritis [Recovering/Resolving]
  - Vision blurred [Recovering/Resolving]
